FAERS Safety Report 19389803 (Version 1)
Quarter: 2021Q2

REPORT INFORMATION
  Report Type: Spontaneous
  Country: US (occurrence: US)
  Receive Date: 20210608
  Receipt Date: 20210608
  Transmission Date: 20210717
  Serious: No
  Sender: FDA-Public Use
  Company Number: US-BEH-2021132498

PATIENT
  Age: 54 Year
  Sex: Female

DRUGS (9)
  1. DICYCLOMINE [DICYCLOVERINE HYDROCHLORIDE] [Concomitant]
     Active Substance: DICYCLOMINE HYDROCHLORIDE
  2. BUDESONIDE. [Concomitant]
     Active Substance: BUDESONIDE
  3. LUNESTA [Concomitant]
     Active Substance: ESZOPICLONE
  4. TYLENOL [Concomitant]
     Active Substance: ACETAMINOPHEN
  5. MESALAMINE. [Concomitant]
     Active Substance: MESALAMINE
  6. TRAMADOL. [Concomitant]
     Active Substance: TRAMADOL
  7. HIZENTRA [Suspect]
     Active Substance: HUMAN IMMUNOGLOBULIN G
     Indication: SELECTIVE IGG SUBCLASS DEFICIENCY
     Dosage: 60 MILLILITER, QW
     Route: 058
     Dates: start: 20190919
  8. GABAPENTIN. [Concomitant]
     Active Substance: GABAPENTIN
  9. BENADRYL [Concomitant]
     Active Substance: DIPHENHYDRAMINE HYDROCHLORIDE

REACTIONS (1)
  - Headache [Not Recovered/Not Resolved]

NARRATIVE: CASE EVENT DATE: 20210524
